FAERS Safety Report 17339008 (Version 1)
Quarter: 2020Q1

REPORT INFORMATION
  Report Type: Spontaneous
  Country: US (occurrence: US)
  Receive Date: 20200113
  Receipt Date: 20200113
  Transmission Date: 20200409
  Serious: Yes (Hospitalization)
  Sender: FDA-Public Use
  Company Number: None

PATIENT
  Age: 15 Year
  Sex: Female

DRUGS (7)
  1. PROAIR HFA [Concomitant]
     Active Substance: ALBUTEROL SULFATE
  2. FLUTICASONE. [Concomitant]
     Active Substance: FLUTICASONE
  3. SODIUM CHLORIDE. [Concomitant]
     Active Substance: SODIUM CHLORIDE
  4. CREONM [Concomitant]
  5. TOBI PODHALER [Concomitant]
     Active Substance: TOBRAMYCIN
     Route: 055
     Dates: start: 20191010
  6. DEKAS PLUS [Concomitant]
  7. PULMOZYME [Suspect]
     Active Substance: DORNASE ALFA
     Indication: CYSTIC FIBROSIS
     Route: 055
     Dates: start: 20140710

REACTIONS (1)
  - Cystic fibrosis lung [None]

NARRATIVE: CASE EVENT DATE: 20191227
